FAERS Safety Report 6600953-7 (Version None)
Quarter: 2010Q1

REPORT INFORMATION
  Report Type: 
  Country: None (occurrence: None)
  Receive Date: 20100225
  Receipt Date: 20100216
  Transmission Date: 20100710
  Serious: Yes (Hospitalization)
  Sender: FDA-Public Use
  Company Number: JP-JNJFOC-20090702330

PATIENT
  Sex: Male
  Weight: 58 kg

DRUGS (12)
  1. REMICADE [Suspect]
     Indication: CROHN'S DISEASE
     Route: 042
  2. REMICADE [Suspect]
     Route: 042
  3. REMICADE [Suspect]
     Route: 042
  4. REMICADE [Suspect]
     Route: 042
  5. REMICADE [Suspect]
     Route: 042
  6. REMICADE [Suspect]
     Route: 042
  7. REMICADE [Suspect]
     Route: 042
  8. REMICADE [Suspect]
     Route: 042
  9. REMICADE [Suspect]
     Dosage: 1ST DOSE IN CLINICAL TRIAL
     Route: 042
  10. GASTER D [Concomitant]
     Indication: GASTROINTESTINAL DISORDER THERAPY
     Dosage: STARTED BEFORE CLINICAL TRIAL
     Route: 048
  11. LAC-B [Concomitant]
     Indication: CROHN'S DISEASE
     Dosage: STARTED BEFORE CLINICAL TRIAL
     Route: 048
  12. PENTASA [Concomitant]
     Indication: CROHN'S DISEASE
     Route: 048

REACTIONS (3)
  - CROHN'S DISEASE [None]
  - DRUG INEFFECTIVE [None]
  - UPPER LIMB FRACTURE [None]
